FAERS Safety Report 24746235 (Version 2)
Quarter: 2025Q1

REPORT INFORMATION
  Report Type: Spontaneous
  Country: FR (occurrence: FR)
  Receive Date: 20241218
  Receipt Date: 20250218
  Transmission Date: 20250409
  Serious: Yes (Disabling)
  Sender: CHEPLAPHARM
  Company Number: None

PATIENT
  Age: 75 Year
  Sex: Female
  Weight: 74 kg

DRUGS (5)
  1. HYDROXYUREA [Suspect]
     Active Substance: HYDROXYUREA
     Indication: Essential thrombocythaemia
     Route: 048
     Dates: start: 2012, end: 20211115
  2. KARDEGIC [Concomitant]
     Active Substance: ASPIRIN DL-LYSINE
     Indication: Essential thrombocythaemia
     Dosage: POWDER FOR ORAL SOLUTION IN SACHET?DAILY DOSE: 1 DOSAGE FORM
     Route: 048
     Dates: start: 2012
  3. CRESTOR [Concomitant]
     Active Substance: ROSUVASTATIN CALCIUM
     Dosage: DAILY DOSE: 1 DOSAGE FORM
     Route: 048
     Dates: start: 2012
  4. IXPRIM [Concomitant]
     Active Substance: ACETAMINOPHEN\TRAMADOL HYDROCHLORIDE
     Dosage: DAILY DOSE: 5 DOSAGE FORM
     Route: 048
     Dates: start: 2012
  5. IRBESARTAN [Concomitant]
     Active Substance: IRBESARTAN
     Dosage: DAILY DOSE: 1 DOSAGE FORM
     Route: 048
     Dates: start: 2012

REACTIONS (3)
  - Skin ulcer [Recovered/Resolved]
  - Impaired healing [Recovered/Resolved]
  - Oedema peripheral [Unknown]

NARRATIVE: CASE EVENT DATE: 20210401
